FAERS Safety Report 5801559-X (Version None)
Quarter: 2008Q3

REPORT INFORMATION
  Report Type: 
  Country: None (occurrence: None)
  Receive Date: 20080707
  Receipt Date: 20080624
  Transmission Date: 20090109
  Serious: Yes (Other)
  Sender: FDA-Public Use
  Company Number: US-ROCHE-466007

PATIENT
  Age: 80 Year
  Sex: Female

DRUGS (9)
  1. BONIVA [Suspect]
     Indication: OSTEOPOROSIS
     Route: 048
     Dates: end: 20070101
  2. HYDROXYZINE HCL [Concomitant]
  3. SYNTHROID [Concomitant]
  4. 1 CONCOMITANT DRUG [Concomitant]
     Dosage: DRUG: PEROXITENE
  5. DAPSONE [Concomitant]
  6. CALTRATE [Concomitant]
  7. CREON [Concomitant]
     Dosage: DRUG: CREON-10
  8. FISH OIL [Concomitant]
  9. ASCORBIC ACID [Concomitant]

REACTIONS (3)
  - JAW DISORDER [None]
  - RASH [None]
  - TOOTH DISORDER [None]
